FAERS Safety Report 8925394 (Version 1)
Quarter: 2012Q4

REPORT INFORMATION
  Report Type: 
  Country: AM (occurrence: AM)
  Receive Date: 20121126
  Receipt Date: 20121126
  Transmission Date: 20130627
  Serious: Yes (Life-Threatening, Hospitalization)
  Sender: FDA-Public Use
  Company Number: AM-ROCHE-1154941

PATIENT
  Sex: Female

DRUGS (1)
  1. MIRCERA [Suspect]
     Indication: RENAL FAILURE CHRONIC
     Route: 065

REACTIONS (2)
  - Hypertonia [Unknown]
  - Chest pain [Unknown]
